FAERS Safety Report 4768110-7 (Version None)
Quarter: 2005Q3

REPORT INFORMATION
  Report Type: 
  Country: None (occurrence: None)
  Receive Date: 20050912
  Receipt Date: 20050912
  Transmission Date: 20060218
  Serious: Yes (Disabling)
  Sender: FDA-Public Use
  Company Number: None

PATIENT
  Sex: Male
  Weight: 103.4201 kg

DRUGS (7)
  1. HYTRIN [Suspect]
     Indication: HYPERTENSION
     Dosage: 5 MG HS PO
     Route: 048
     Dates: start: 20050727, end: 20050901
  2. PROCARDIA [Concomitant]
  3. ALLOPURINOL [Concomitant]
  4. GLUCAPHAGE [Concomitant]
  5. FLONASE [Concomitant]
  6. ASPIRIN [Concomitant]
  7. NEXIUM [Concomitant]

REACTIONS (3)
  - ASTHENIA [None]
  - BLOOD CREATINE PHOSPHOKINASE INCREASED [None]
  - MYALGIA [None]
